FAERS Safety Report 17473636 (Version 1)
Quarter: 2020Q1

REPORT INFORMATION
  Report Type: Spontaneous
  Country: US (occurrence: US)
  Receive Date: 20200228
  Receipt Date: 20200228
  Transmission Date: 20200409
  Serious: Yes (Hospitalization, Disabling, Other)
  Sender: FDA-Public Use
  Company Number: None

PATIENT
  Age: 49 Year
  Sex: Female
  Weight: 96.55 kg

DRUGS (7)
  1. IBU [Concomitant]
     Active Substance: IBUPROFEN
  2. AMOXICILLIN AND CLAVULANATE [Concomitant]
     Active Substance: AMOXICILLIN\CLAVULANIC ACID
  3. ONDANSETRON [Concomitant]
     Active Substance: ONDANSETRON
  4. AMPICILLIN AND SULBACTAM [Suspect]
     Active Substance: AMPICILLIN SODIUM\SULBACTAM SODIUM
     Indication: CELLULITIS
     Dosage: ?          OTHER FREQUENCY:1X;?
     Route: 042
  5. AUGMENTIN [Suspect]
     Active Substance: AMOXICILLIN\CLAVULANATE POTASSIUM
     Indication: CELLULITIS
     Route: 048
  6. UNASYN [Concomitant]
     Active Substance: AMPICILLIN SODIUM\SULBACTAM SODIUM
  7. METHYLPREDNISOLONE. [Concomitant]
     Active Substance: METHYLPREDNISOLONE

REACTIONS (6)
  - Jaundice [None]
  - Hepatitis cholestatic [None]
  - Lymphadenopathy [None]
  - Pruritus [None]
  - Gastritis [None]
  - Hepatic enzyme increased [None]

NARRATIVE: CASE EVENT DATE: 20190718
